FAERS Safety Report 6303624-X (Version None)
Quarter: 2009Q3

REPORT INFORMATION
  Report Type: 
  Country: None (occurrence: None)
  Receive Date: 20090807
  Receipt Date: 20090807
  Transmission Date: 20100115
  Serious: Yes (Other)
  Sender: FDA-Public Use
  Company Number: None

PATIENT
  Age: 42 Year
  Sex: Male
  Weight: 87.9978 kg

DRUGS (1)
  1. METRONIDAZOLE [Suspect]
     Indication: ROSACEA
     Dosage: APPLY TO ROSACEA AFFECTED SKIN 2X PER DAY TOP, INTERMITTENT
     Route: 061
     Dates: start: 20030101

REACTIONS (1)
  - DEPRESSION [None]
